FAERS Safety Report 15978473 (Version 1)
Quarter: 2019Q1

REPORT INFORMATION
  Report Type: Spontaneous
  Country: MK (occurrence: MK)
  Receive Date: 20190219
  Receipt Date: 20190219
  Transmission Date: 20190418
  Serious: Yes (Death)
  Sender: FDA-Public Use
  Company Number: MK-ROCHE-2261847

PATIENT
  Age: 5 Year
  Sex: Female

DRUGS (4)
  1. IMMUNE GLOBULIN NOS [Concomitant]
     Active Substance: IMMUNE GLOBULIN NOS
     Route: 042
  2. OXYGEN. [Concomitant]
     Active Substance: OXYGEN
     Route: 065
  3. PLASMA [Concomitant]
     Active Substance: HUMAN PLASMA
     Route: 065
  4. TAMIFLU [Suspect]
     Active Substance: OSELTAMIVIR PHOSPHATE
     Indication: INFLUENZA
     Route: 065

REACTIONS (3)
  - Seizure [Fatal]
  - Altered state of consciousness [Fatal]
  - Respiratory symptom [Fatal]
